FAERS Safety Report 17446617 (Version 3)
Quarter: 2020Q2

REPORT INFORMATION
  Report Type: Report from Study
  Country: CR (occurrence: CR)
  Receive Date: 20200221
  Receipt Date: 20200601
  Transmission Date: 20200713
  Serious: No
  Sender: FDA-Public Use
  Company Number: NVSC2020CR048775

PATIENT
  Sex: Female
  Weight: 70 kg

DRUGS (16)
  1. EXFORGE HCT [Suspect]
     Active Substance: AMLODIPINE BESYLATE\HYDROCHLOROTHIAZIDE\VALSARTAN
     Dosage: 160/5 MG
     Route: 065
  2. CORENTEL [Concomitant]
     Indication: PROPHYLAXIS
     Dosage: 10 MG (1 TABLET DAILY, SHE CONSUMES IT AT NIGHT BEFORE GOING TO BED.)
     Route: 065
  3. PROBIO [Concomitant]
     Indication: GASTROINTESTINAL DISORDER
     Route: 065
  4. EXFORGE HCT [Suspect]
     Active Substance: AMLODIPINE BESYLATE\HYDROCHLOROTHIAZIDE\VALSARTAN
     Dosage: 10/160/25 MG
     Route: 065
     Dates: start: 201904
  5. EXFORGE HCT [Suspect]
     Active Substance: AMLODIPINE BESYLATE\HYDROCHLOROTHIAZIDE\VALSARTAN
     Dosage: 5/320 MG
     Route: 065
  6. CONCOR [Concomitant]
     Active Substance: BISOPROLOL FUMARATE
     Dosage: 10 MG , QD (1 DF AT NIGHT BEFORE GOING TO BED)
     Route: 065
     Dates: start: 2019
  7. EXFORGE HCT [Suspect]
     Active Substance: AMLODIPINE BESYLATE\HYDROCHLOROTHIAZIDE\VALSARTAN
     Indication: HYPERTENSION
     Dosage: 10/320/25 MG (5 YEARS AGO)
     Route: 065
  8. AMLODIPINE [Concomitant]
     Active Substance: AMLODIPINE BESYLATE
     Indication: PRODUCT USED FOR UNKNOWN INDICATION
     Dosage: 10 MG
     Route: 065
  9. EUTIROX [Concomitant]
     Active Substance: LEVOTHYROXINE SODIUM
     Indication: HYPOTHYROIDISM
     Dosage: 1 DF, QD IN THE MORNING FASTING
     Route: 065
  10. SEROQUEL [Concomitant]
     Active Substance: QUETIAPINE FUMARATE
     Indication: DEPRESSION
     Dosage: 1 DF, QD, DAILY AT NIGHT
     Route: 065
  11. EXFORGE HCT [Suspect]
     Active Substance: AMLODIPINE BESYLATE\HYDROCHLOROTHIAZIDE\VALSARTAN
     Dosage: 5/160/25MG
     Route: 065
  12. CONCOR [Concomitant]
     Active Substance: BISOPROLOL FUMARATE
     Dosage: 5 MG
     Route: 065
  13. NEBILET [Concomitant]
     Active Substance: NEBIVOLOL
     Indication: PRODUCT USED FOR UNKNOWN INDICATION
     Route: 065
  14. CONCOR [Concomitant]
     Active Substance: BISOPROLOL FUMARATE
     Indication: PROPHYLAXIS
     Dosage: 2.5 MG (STARTED 5 YEARS AGO AND WAS SUSPENDED)
     Route: 065
  15. EXFORGE [Suspect]
     Active Substance: AMLODIPINE BESYLATE\VALSARTAN
     Indication: HYPERTENSION
     Route: 065
  16. EXFORGE HCT [Suspect]
     Active Substance: AMLODIPINE BESYLATE\HYDROCHLOROTHIAZIDE\VALSARTAN
     Dosage: 10/160/12.5
     Route: 065
     Dates: end: 201904

REACTIONS (12)
  - General physical health deterioration [Unknown]
  - Hypotension [Unknown]
  - Malaise [Unknown]
  - Boredom [Unknown]
  - Oropharyngeal discomfort [Unknown]
  - Drug ineffective [Unknown]
  - Aphonia [Unknown]
  - Anxiety [Unknown]
  - Tension [Unknown]
  - Feeling abnormal [Unknown]
  - Insomnia [Unknown]
  - Incorrect dose administered [Unknown]
